FAERS Safety Report 4856097-8 (Version None)
Quarter: 2005Q4

REPORT INFORMATION
  Report Type: 
  Country: None (occurrence: None)
  Receive Date: 20051216
  Receipt Date: 20051208
  Transmission Date: 20060501
  Serious: Yes (Hospitalization)
  Sender: FDA-Public Use
  Company Number: US-MERCK-0512USA01238

PATIENT
  Age: 63 Year
  Sex: Female

DRUGS (12)
  1. FOSAMAX [Suspect]
     Indication: OSTEOPOROSIS
     Route: 048
     Dates: start: 20051101, end: 20051101
  2. SYNTHROID [Concomitant]
     Route: 065
  3. AVALIDE [Concomitant]
     Route: 065
  4. NEXIUM [Concomitant]
     Route: 065
  5. TOPROL-XL [Concomitant]
     Route: 065
  6. LASIX [Concomitant]
     Route: 065
  7. TARKA [Concomitant]
     Route: 065
  8. HYOSCYAMINE [Concomitant]
     Route: 065
  9. HYDROXYZINE PAMOATE [Concomitant]
     Route: 065
  10. STARLIX [Concomitant]
     Route: 065
  11. AVANDIA [Concomitant]
     Route: 065
  12. NITROGLYCERIN [Concomitant]
     Route: 065

REACTIONS (2)
  - BLOOD PRESSURE DECREASED [None]
  - DIZZINESS [None]
